FAERS Safety Report 20391161 (Version 1)
Quarter: 2022Q1

REPORT INFORMATION
  Report Type: Spontaneous
  Country: CN (occurrence: CN)
  Receive Date: 20220128
  Receipt Date: 20220128
  Transmission Date: 20220423
  Serious: Yes (Disabling)
  Sender: FDA-Public Use
  Company Number: CN-PFIZER INC-202200080809

PATIENT
  Age: 64 Year
  Sex: Male

DRUGS (4)
  1. ZYVOX [Suspect]
     Active Substance: LINEZOLID
     Indication: Pneumonia
     Dosage: 0.6 G, 2X/DAY
     Route: 048
     Dates: start: 20210729, end: 20220106
  2. ETHAMBUTOL HYDROCHLORIDE [Suspect]
     Active Substance: ETHAMBUTOL HYDROCHLORIDE
     Indication: Pneumonia
     Dosage: 1 G, 1X/DAY
     Route: 048
     Dates: start: 20210729, end: 20211130
  3. RIFAMPIN [Concomitant]
     Active Substance: RIFAMPIN
     Indication: Pneumonia
     Dosage: 0.6 G, 1X/DAY
     Route: 048
     Dates: start: 20210729, end: 20220106
  4. AZITHROMYCIN [Concomitant]
     Active Substance: AZITHROMYCIN
     Indication: Pneumonia
     Dosage: 500 MG, 1X/DAY
     Route: 048
     Dates: start: 20210729, end: 20220106

REACTIONS (2)
  - Optic neuritis [Unknown]
  - Hypoaesthesia [Unknown]

NARRATIVE: CASE EVENT DATE: 20211130
